FAERS Safety Report 7825874-3 (Version None)
Quarter: 2011Q4

REPORT INFORMATION
  Report Type: 
  Country: None (occurrence: None)
  Receive Date: 20111019
  Receipt Date: 20111011
  Transmission Date: 20120403
  Serious: Yes (Death, Hospitalization, Other)
  Sender: FDA-Public Use
  Company Number: JP-ROCHE-635521

PATIENT
  Sex: Male
  Weight: 49 kg

DRUGS (14)
  1. PREDNISOLONE AND PREDNISOLONE ACETATE AND PREDNISOLONE SODIUM SUCCINAT [Suspect]
     Indication: PRODUCT USED FOR UNKNOWN INDICATION
     Route: 048
     Dates: start: 20081206, end: 20081226
  2. PREDNISOLONE AND PREDNISOLONE ACETATE AND PREDNISOLONE SODIUM SUCCINAT [Suspect]
     Route: 048
     Dates: start: 20090115, end: 20090219
  3. OMEPRAZOLE [Concomitant]
     Dosage: FORM: ENTERIC.
     Route: 048
  4. ACTEMRA [Suspect]
     Route: 041
     Dates: start: 20090317, end: 20090317
  5. PREDNISOLONE AND PREDNISOLONE ACETATE AND PREDNISOLONE SODIUM SUCCINAT [Suspect]
     Route: 048
     Dates: start: 20090410, end: 20090423
  6. MINOCYCLINE HYDROCHLORIDE [Concomitant]
     Dosage: FORM: ORAL FORMULATION (NOT OTHERWISE SPECIFIED).
     Route: 048
  7. ASPIRIN [Concomitant]
     Dosage: FORM: ENTERIC.
     Route: 048
     Dates: start: 20081210, end: 20090514
  8. ACTEMRA [Suspect]
     Indication: RHEUMATOID ARTHRITIS
     Route: 041
     Dates: start: 20081224, end: 20081224
  9. MINOCYCLINE HYDROCHLORIDE [Concomitant]
     Dosage: FORM: ORAL FORMULATION (NOT OTHERWISE SPECIFIED).
     Route: 048
     Dates: start: 20081208, end: 20090205
  10. PREDNISOLONE AND PREDNISOLONE ACETATE AND PREDNISOLONE SODIUM SUCCINAT [Suspect]
     Route: 048
     Dates: start: 20090108, end: 20090114
  11. PREDNISOLONE AND PREDNISOLONE ACETATE AND PREDNISOLONE SODIUM SUCCINAT [Suspect]
     Route: 048
  12. PREDNISOLONE AND PREDNISOLONE ACETATE AND PREDNISOLONE SODIUM SUCCINAT [Suspect]
     Route: 048
     Dates: start: 20090220, end: 20090409
  13. ACTEMRA [Suspect]
     Route: 041
     Dates: start: 20090121, end: 20090121
  14. PREDNISOLONE AND PREDNISOLONE ACETATE AND PREDNISOLONE SODIUM SUCCINAT [Suspect]
     Route: 048
     Dates: start: 20081227, end: 20090107

REACTIONS (7)
  - SKIN ULCER [None]
  - SPINAL COMPRESSION FRACTURE [None]
  - SEPSIS [None]
  - PURPURA [None]
  - OEDEMA PERIPHERAL [None]
  - VENOUS THROMBOSIS LIMB [None]
  - NEUROPATHY PERIPHERAL [None]
